FAERS Safety Report 4399935-8 (Version None)
Quarter: 2004Q3

REPORT INFORMATION
  Report Type: 
  Country: None (occurrence: None)
  Receive Date: 20040714
  Receipt Date: 20040701
  Transmission Date: 20050211
  Serious: Yes (Hospitalization)
  Sender: FDA-Public Use
  Company Number: RS004538-J

PATIENT
  Age: 48 Year
  Sex: Female
  Weight: 56 kg

DRUGS (18)
  1. RABEPRAZOLE SODIUM [Suspect]
     Indication: GASTRIC ULCER
     Dosage: 10 MG, 1 IN 1 D, ORAL
     Route: 048
     Dates: start: 20031208, end: 20040604
  2. ALFAROL (ALFACALCIDOL) [Suspect]
     Indication: OSTEOPOROSIS
     Dosage: 0.5 MCG, UNKNOWN, ORAL
     Route: 048
     Dates: start: 20010101, end: 20040610
  3. DIAMOX [Suspect]
     Indication: GLAUCOMA
     Dosage: 1000 MG, UNKNOWN; ORAL
     Route: 048
     Dates: start: 20031115, end: 20040610
  4. VITAMEDIN (VITAMEDIN CAPSULE) [Suspect]
     Indication: HYPOVITAMINOSIS
     Dosage: 3 DOSAGE FORMS, UNKNOWN; ORAL (SEE MAGE)
     Route: 048
     Dates: start: 20031119, end: 20040610
  5. LASIX [Suspect]
     Indication: OEDEMA
     Dosage: 10 MG, UNKNOWN; ORAL (SEE IMAGE)
     Route: 048
     Dates: start: 20010101, end: 20040610
  6. RHEUMATREX [Suspect]
     Indication: RHEUMATOID ARTHRITIS
     Dosage: SEE IMAGE
     Route: 048
     Dates: start: 20020201, end: 20020501
  7. RHEUMATREX [Suspect]
     Indication: RHEUMATOID ARTHRITIS
     Dosage: SEE IMAGE
     Route: 048
     Dates: start: 20020501, end: 20020901
  8. RHEUMATREX [Suspect]
     Indication: RHEUMATOID ARTHRITIS
     Dosage: SEE IMAGE
     Route: 048
     Dates: start: 20020901, end: 20021001
  9. RHEUMATREX [Suspect]
     Indication: RHEUMATOID ARTHRITIS
     Dosage: SEE IMAGE
     Route: 048
     Dates: start: 20021001, end: 20030301
  10. RHEUMATREX [Suspect]
     Indication: RHEUMATOID ARTHRITIS
     Dosage: SEE IMAGE
     Route: 048
     Dates: start: 20030301
  11. FOLIC ACID [Suspect]
     Indication: FOLATE DEFICIENCY
     Dosage: 5 MG, UNKNOWN; ORAL (SEE IMAGE)
     Route: 048
     Dates: start: 20040301, end: 20040603
  12. BENET (RISEDRONATE SODIUM) [Suspect]
     Indication: OSTEOPOROSIS
     Dosage: 2.5 MG, UNKNOWN; ORAL (SEE IMAGE)
     Route: 048
     Dates: start: 20040101, end: 20040610
  13. ISONIAZID [Suspect]
     Indication: TUBERCULOSIS PROPHYLAXIS
     Dosage: 1000 MG, UNKNOWN (SEE IMAGE)
     Route: 065
     Dates: start: 20031114, end: 20040610
  14. GLUCONSAN K (POTASSIUM GLUCONATE) [Suspect]
     Indication: GLAUCOMA
     Dosage: 8 GM, UNKNOWN; ORAL (SEE IMAGE)
     Route: 048
     Dates: start: 20031115, end: 20040610
  15. ALLEGRA [Suspect]
     Indication: HYPERSENSITIVITY
     Dosage: 120 MG, UNKNOWN; ORAL
     Route: 048
     Dates: start: 20040501, end: 20040610
  16. PREDNISOLONE [Suspect]
     Indication: RHEUMATOID ARTHRITIS
     Dosage: 10 MG, UNKNOWN; ORAL (SEE IMAGE)
     Route: 048
     Dates: start: 20040322, end: 20040517
  17. PREDNISOLONE [Suspect]
     Indication: RHEUMATOID ARTHRITIS
     Dosage: 10 MG, UNKNOWN; ORAL (SEE IMAGE)
     Route: 048
     Dates: start: 20040518, end: 20040611
  18. PREDNISOLONE [Suspect]
     Indication: RHEUMATOID ARTHRITIS
     Dosage: 10 MG, UNKNOWN; ORAL (SEE IMAGE)
     Route: 048
     Dates: start: 20040518

REACTIONS (4)
  - EOSINOPHILIA [None]
  - PRURITUS [None]
  - RASH [None]
  - URTICARIA [None]
